FAERS Safety Report 7426114-X (Version None)
Quarter: 2011Q2

REPORT INFORMATION
  Report Type: 
  Country: None (occurrence: None)
  Receive Date: 20110420
  Receipt Date: 20110408
  Transmission Date: 20111010
  Serious: Yes (Hospitalization)
  Sender: FDA-Public Use
  Company Number: PHFR2010GB04658

PATIENT
  Sex: Male

DRUGS (3)
  1. TEGRETOL [Suspect]
     Dosage: UNK MG, UNK
     Route: 048
  2. EPILIM [Concomitant]
     Dosage: 500 MG, BID
  3. CLOBAZAM [Concomitant]
     Indication: CONVULSION
     Dosage: 10MG PRN

REACTIONS (1)
  - CONVULSION [None]
